FAERS Safety Report 7311211-X (Version None)
Quarter: 2011Q1

REPORT INFORMATION
  Report Type: 
  Country: None (occurrence: None)
  Receive Date: 20110224
  Receipt Date: 20100721
  Transmission Date: 20110831
  Serious: Yes (Other)
  Sender: FDA-Public Use
  Company Number: US-BAYER-200922373NA

PATIENT
  Sex: Female
  Weight: 79 kg

DRUGS (9)
  1. YASMIN [Suspect]
     Indication: MENORRHAGIA
     Dosage: 1 DF (DAILY DOSE), QD, ORAL
     Route: 048
  2. PROGESTERON [Concomitant]
     Indication: MENSTRUATION IRREGULAR
     Dosage: UNK
     Dates: start: 20080101
  3. LEVOXYL [Concomitant]
     Indication: HYPOTHYROIDISM
     Dosage: UNK
  4. METFORMIN HCL [Concomitant]
     Indication: POLYCYSTIC OVARIES
     Dosage: UNK
     Dates: start: 20020101
  5. MINOCYCLINE HCL [Concomitant]
     Indication: PRODUCT USED FOR UNKNOWN INDICATION
  6. WELLBUTRIN [Concomitant]
     Indication: DEPRESSION
     Dosage: UNK
     Dates: start: 20080401
  7. AMBIEN [Concomitant]
     Indication: INSOMNIA
     Dosage: UNK
  8. DIAZEPAM [Concomitant]
     Indication: ANXIETY
     Dosage: UNK
     Dates: start: 20070101
  9. CYTOMEL [Concomitant]
     Indication: HYPERTHYROIDISM
     Dosage: UNK
     Dates: start: 20030101

REACTIONS (10)
  - PAIN [None]
  - BURNING SENSATION [None]
  - PULMONARY EMBOLISM [None]
  - INJURY [None]
  - ANXIETY [None]
  - OEDEMA PERIPHERAL [None]
  - DEPRESSION [None]
  - DEEP VEIN THROMBOSIS [None]
  - THROMBOSIS [None]
  - DYSPHORIA [None]
